FAERS Safety Report 4714107-2 (Version None)
Quarter: 2005Q3

REPORT INFORMATION
  Report Type: 
  Country: None (occurrence: None)
  Receive Date: 20050713
  Receipt Date: 20050713
  Transmission Date: 20060218
  Serious: Yes (Hospitalization)
  Sender: FDA-Public Use
  Company Number: None

PATIENT
  Sex: Male

DRUGS (26)
  1. LEVOFLOXACIN [Suspect]
     Indication: SKIN ULCER
     Dosage: 500 MG ONCE ORAL
     Route: 048
     Dates: start: 20050104, end: 20050104
  2. LEVOFLOXACIN [Suspect]
     Indication: SKIN ULCER
     Dosage: 250 MG DAILY ORAL
     Route: 048
     Dates: start: 20050105, end: 20050113
  3. PSYLLIUM [Concomitant]
  4. PILOCARPINE [Concomitant]
  5. TRAZODONE HCL [Concomitant]
  6. CYANOCOBALAMIN [Concomitant]
  7. FUROSEMIDE [Concomitant]
  8. DOCUSATE [Concomitant]
  9. TOLTERODINE [Concomitant]
  10. CALCIUM GLUCONATE [Concomitant]
  11. DILTIAZEM [Concomitant]
  12. FOLIC ACID [Concomitant]
  13. LACTULOSE [Concomitant]
  14. SENNOSIDES [Concomitant]
  15. SIMVASTATIN [Concomitant]
  16. IPRATROPIUM BROMIDE [Concomitant]
  17. OMEPRAZOLE [Concomitant]
  18. WARFARIN SODIUM [Concomitant]
  19. GALANTAMINE HYDROBROMIDE [Concomitant]
  20. ASPIRIN [Concomitant]
  21. APAP W/ CODEINE [Concomitant]
  22. CITALOPRAM [Concomitant]
  23. CROMOLYN OPHTHALMIC [Concomitant]
  24. CAPSAICIN [Concomitant]
  25. CYCLOBENZAPRINE HCL [Concomitant]
  26. APAP TAB [Concomitant]

REACTIONS (5)
  - BACTERIA STOOL IDENTIFIED [None]
  - CONSTIPATION [None]
  - DIARRHOEA [None]
  - NAUSEA [None]
  - VOMITING [None]
